FAERS Safety Report 8712955 (Version 2)
Quarter: 2012Q4

REPORT INFORMATION
  Report Type: 
  Country: FR (occurrence: FR)
  Receive Date: 20120808
  Receipt Date: 20121207
  Transmission Date: 20130627
  Serious: Yes (Hospitalization)
  Sender: FDA-Public Use
  Company Number: FR-SANOFI-AVENTIS-2012SA054386

PATIENT
  Age: 74 Year
  Sex: Male

DRUGS (14)
  1. OFLOCET [Suspect]
     Indication: STAPHYLOCOCCAL BACTEREMIA
     Route: 048
     Dates: start: 20120621, end: 20120705
  2. TARGOCID [Suspect]
     Indication: STAPHYLOCOCCAL BACTEREMIA
     Route: 042
     Dates: start: 20120621, end: 20120705
  3. PLAVIX [Concomitant]
     Indication: MYOCARDIAL INFARCT
     Route: 048
     Dates: start: 20120611
  4. TAHOR [Concomitant]
     Indication: MYOCARDIAL INFARCT
     Route: 048
     Dates: start: 20120611
  5. CARDENSIEL [Concomitant]
     Indication: MYOCARDIAL INFARCT
     Route: 048
     Dates: start: 20120611
  6. AMLOR [Concomitant]
     Indication: MYOCARDIAL INFARCT
     Route: 048
     Dates: start: 20120611
  7. SECTRAL [Concomitant]
     Route: 065
     Dates: end: 20120611
  8. LASILIX [Concomitant]
  9. ATACAND [Concomitant]
  10. INEGY [Concomitant]
     Dates: end: 20120611
  11. NOVOMIX [Concomitant]
  12. STEROGYL [Concomitant]
  13. KARDEGIC [Concomitant]
  14. XATRAL [Concomitant]

REACTIONS (3)
  - Pyrexia [Recovered/Resolved]
  - Eosinophilia [Recovered/Resolved]
  - Renal failure acute [Recovering/Resolving]
